FAERS Safety Report 18312034 (Version 3)
Quarter: 2020Q4

REPORT INFORMATION
  Report Type: Spontaneous
  Country: US (occurrence: US)
  Receive Date: 20200925
  Receipt Date: 20201120
  Transmission Date: 20210113
  Serious: Yes (Other)
  Sender: FDA-Public Use
  Company Number: US-ENDO PHARMACEUTICALS INC-2020-006212

PATIENT
  Sex: Female

DRUGS (2)
  1. EVEROLIMUS. [Suspect]
     Active Substance: EVEROLIMUS
     Indication: BREAST CANCER METASTATIC
     Dosage: UNK UNKNOWN, UNKNOWN
     Route: 065
  2. EVEROLIMUS. [Suspect]
     Active Substance: EVEROLIMUS
     Dosage: (SHE ONLY TOOK HALF A TABLET), UNKNOWN, UNKNOWN
     Route: 065

REACTIONS (11)
  - Breast cancer metastatic [Not Recovered/Not Resolved]
  - Acne [Unknown]
  - Intentional product use issue [Unknown]
  - Condition aggravated [Not Recovered/Not Resolved]
  - Wrong technique in product usage process [Unknown]
  - Joint swelling [Unknown]
  - Urticaria [Unknown]
  - Rash [Unknown]
  - Drug ineffective [Unknown]
  - Joint stiffness [Unknown]
  - Pruritus [Unknown]
